FAERS Safety Report 13884077 (Version 1)
Quarter: 2017Q3

REPORT INFORMATION
  Report Type: Spontaneous
  Country: ES (occurrence: ES)
  Receive Date: 20170820
  Receipt Date: 20170820
  Transmission Date: 20171127
  Serious: Yes (Other)
  Sender: FDA-Public Use
  Company Number: ES-AMGEN-ESPSP2017125842

PATIENT
  Age: 72 Year
  Sex: Male

DRUGS (1)
  1. PROCORALAN [Suspect]
     Active Substance: IVABRADINE
     Indication: MYOCARDIAL ISCHAEMIA
     Dosage: UNK
     Route: 048
     Dates: start: 20170502

REACTIONS (3)
  - Hypertension [Recovered/Resolved]
  - Dizziness [Recovered/Resolved]
  - Asthenia [Recovered/Resolved]

NARRATIVE: CASE EVENT DATE: 20170520
